FAERS Safety Report 23015734 (Version 7)
Quarter: 2024Q1

REPORT INFORMATION
  Report Type: Spontaneous
  Country: CZ (occurrence: CZ)
  Receive Date: 20231002
  Receipt Date: 20240325
  Transmission Date: 20240410
  Serious: Yes (Life-Threatening, Hospitalization, Other)
  Sender: FDA-Public Use
  Company Number: CZ-PFIZER INC-PV202300157894

PATIENT
  Age: 42 Year
  Sex: Female

DRUGS (26)
  1. VORICONAZOLE [Interacting]
     Active Substance: VORICONAZOLE
     Indication: Bronchopulmonary aspergillosis
     Dosage: 600 MILLIGRAM, QD
     Route: 042
  2. VORICONAZOLE [Interacting]
     Active Substance: VORICONAZOLE
     Indication: Antifungal treatment
  3. VORICONAZOLE [Interacting]
     Active Substance: VORICONAZOLE
     Indication: Asthma
  4. MOXIFLOXACIN [Interacting]
     Active Substance: MOXIFLOXACIN
     Indication: Antibiotic therapy
     Dosage: UNK
     Route: 065
  5. MOXIFLOXACIN [Interacting]
     Active Substance: MOXIFLOXACIN
     Indication: Sepsis
  6. MOXIFLOXACIN [Interacting]
     Active Substance: MOXIFLOXACIN
     Indication: Asthma
  7. METRONIDAZOLE [Interacting]
     Active Substance: METRONIDAZOLE
     Indication: Antibiotic therapy
     Dosage: UNK
     Route: 065
  8. METRONIDAZOLE [Interacting]
     Active Substance: METRONIDAZOLE
     Indication: Sepsis
  9. METRONIDAZOLE [Interacting]
     Active Substance: METRONIDAZOLE
     Indication: Asthma
  10. NOREPINEPHRINE [Interacting]
     Active Substance: NOREPINEPHRINE\NOREPINEPHRINE BITARTRATE
     Indication: Product used for unknown indication
     Dosage: 0.47 MG/KG/MIN
     Route: 065
  11. KETAMINE [Interacting]
     Active Substance: KETAMINE
     Indication: Product used for unknown indication
     Dosage: UNK
     Route: 065
  12. MEROPENEM [Suspect]
     Active Substance: MEROPENEM
     Indication: Antibiotic therapy
     Dosage: UNK
     Route: 065
  13. MEROPENEM [Suspect]
     Active Substance: MEROPENEM
     Indication: Condition aggravated
  14. MEROPENEM [Suspect]
     Active Substance: MEROPENEM
     Indication: Bronchopulmonary aspergillosis
  15. MEROPENEM [Suspect]
     Active Substance: MEROPENEM
     Indication: Pneumonia
  16. LEVOFLOXACIN [Concomitant]
     Active Substance: LEVOFLOXACIN
     Indication: Antibiotic therapy
     Dosage: UNK
     Route: 065
  17. LEVOFLOXACIN [Concomitant]
     Active Substance: LEVOFLOXACIN
     Indication: Pneumonia
  18. LINEZOLID [Concomitant]
     Active Substance: LINEZOLID
     Indication: Antibiotic therapy
     Dosage: UNK
     Route: 065
  19. LINEZOLID [Concomitant]
     Active Substance: LINEZOLID
     Indication: Bronchopulmonary aspergillosis
  20. LINEZOLID [Concomitant]
     Active Substance: LINEZOLID
     Indication: Asthma
  21. AVIBACTAM SODIUM\CEFTAZIDIME [Concomitant]
     Active Substance: AVIBACTAM SODIUM\CEFTAZIDIME
     Indication: Antibiotic therapy
     Dosage: UNK
     Route: 065
  22. AVIBACTAM SODIUM\CEFTAZIDIME [Concomitant]
     Active Substance: AVIBACTAM SODIUM\CEFTAZIDIME
     Indication: Bronchopulmonary aspergillosis
  23. ANIDULAFUNGIN [Concomitant]
     Active Substance: ANIDULAFUNGIN
     Indication: Antifungal treatment
     Dosage: UNK
     Route: 065
  24. CRESEMBA [Concomitant]
     Active Substance: ISAVUCONAZONIUM SULFATE
     Indication: Antifungal treatment
     Dosage: UNK
     Route: 065
  25. CEFTAZIDIME [Concomitant]
     Active Substance: CEFTAZIDIME
     Indication: Bronchopulmonary aspergillosis
     Dosage: UNK
     Route: 065
  26. AVIBACTAM [Concomitant]
     Active Substance: AVIBACTAM
     Indication: Bronchopulmonary aspergillosis
     Dosage: UNK
     Route: 065

REACTIONS (11)
  - Condition aggravated [Recovering/Resolving]
  - Disease progression [Recovered/Resolved]
  - Drug ineffective [Recovered/Resolved]
  - Sepsis [Recovered/Resolved]
  - Respiratory failure [Unknown]
  - Respiratory acidosis [Unknown]
  - Drug level decreased [Recovered/Resolved]
  - Multiple organ dysfunction syndrome [Unknown]
  - Hypoxia [Unknown]
  - Liver disorder [Unknown]
  - Drug interaction [Unknown]
